FAERS Safety Report 19209394 (Version 2)
Quarter: 2021Q2

REPORT INFORMATION
  Report Type: Spontaneous
  Country: US (occurrence: US)
  Receive Date: 20210503
  Receipt Date: 20210510
  Transmission Date: 20210717
  Serious: No
  Sender: FDA-Public Use
  Company Number: US-PFIZER INC-2021200322

PATIENT
  Age: 52 Year
  Sex: Female
  Weight: 82 kg

DRUGS (2)
  1. IBRANCE [Suspect]
     Active Substance: PALBOCICLIB
     Indication: BREAST CANCER
     Dosage: 125 MG, CYCLIC (21 DAYS ON, 7 DAYS OFF)
     Route: 048
     Dates: start: 20201106
  2. ZOLADEX [Concomitant]
     Active Substance: GOSERELIN ACETATE
     Dosage: UNK

REACTIONS (1)
  - Blood count abnormal [Unknown]
